FAERS Safety Report 5206808-7 (Version None)
Quarter: 2006Q4

REPORT INFORMATION
  Report Type: 
  Country: None (occurrence: None)
  Receive Date: 20061026
  Receipt Date: 20060724
  Transmission Date: 20070319
  Serious: No
  Sender: FDA-Public Use
  Company Number: 2006092240

PATIENT
  Age: 39 Year
  Sex: Male
  Weight: 77.1115 kg

DRUGS (7)
  1. LYRICA [Suspect]
     Indication: PAIN
     Dosage: 200 MG (100 MG, 3 IN 1 D)
     Dates: start: 20060601
  2. NEURONTIN [Suspect]
     Indication: PAIN
     Dosage: 900 MG (300  MG, 2 IN 1 D)
     Dates: start: 19920101, end: 20060601
  3. CELEBREX [Suspect]
     Indication: PAIN
  4. EFFEXOR [Suspect]
     Indication: DEPRESSION
  5. MORPHINE [Concomitant]
  6. HYDROCODONE BITARTRATE [Concomitant]
  7. OXYCODONE HCL [Concomitant]

REACTIONS (7)
  - ABNORMAL DREAMS [None]
  - DEPRESSION [None]
  - FEELING ABNORMAL [None]
  - MYALGIA [None]
  - THERAPEUTIC RESPONSE DECREASED [None]
  - TREMOR [None]
  - WEIGHT INCREASED [None]
